FAERS Safety Report 22006799 (Version 1)
Quarter: 2023Q1

REPORT INFORMATION
  Report Type: Other
  Country: None (occurrence: JP)
  Receive Date: 20230217
  Receipt Date: 20230217
  Transmission Date: 20230418
  Serious: Yes (Hospitalization, Other)
  Sender: FDA-Public Use
  Company Number: JP-Spectra Medical Devices, LLC-2138112

PATIENT
  Age: 68 Year
  Sex: Female

DRUGS (3)
  1. SODIUM CHLORIDE [Suspect]
     Active Substance: SODIUM CHLORIDE
     Indication: Diabetic ketoacidosis
     Route: 042
  2. INSULIN NOS [Suspect]
     Active Substance: INSULIN NOS
     Route: 042
  3. SODIUM BICARBONATE [Suspect]
     Active Substance: SODIUM BICARBONATE
     Route: 065

REACTIONS (2)
  - Vasogenic cerebral oedema [Recovering/Resolving]
  - Product use in unapproved indication [Unknown]
